FAERS Safety Report 4580320-0 (Version None)
Quarter: 2005Q1

REPORT INFORMATION
  Report Type: 
  Country: None (occurrence: None)
  Receive Date: 20050214
  Receipt Date: 20031002
  Transmission Date: 20050727
  Serious: No
  Sender: FDA-Public Use
  Company Number: US-GLAXOSMITHKLINE-A0428295A

PATIENT
  Age: 60 Year
  Sex: Female

DRUGS (5)
  1. LAMICTAL [Suspect]
     Indication: BIPOLAR DISORDER
     Dosage: 50MG PER DAY
     Route: 048
     Dates: start: 20030801, end: 20040401
  2. EFFEXOR [Concomitant]
  3. KLONOPIN [Concomitant]
  4. GEODON [Concomitant]
  5. LITHIUM [Concomitant]

REACTIONS (4)
  - AGITATION [None]
  - ANXIETY [None]
  - CHILLS [None]
  - INSOMNIA [None]
